FAERS Safety Report 6309609-1 (Version None)
Quarter: 2009Q3

REPORT INFORMATION
  Report Type: 
  Country: None (occurrence: None)
  Receive Date: 20090811
  Receipt Date: 20090619
  Transmission Date: 20100115
  Serious: No
  Sender: FDA-Public Use
  Company Number: 1000006936

PATIENT
  Age: 64 Year
  Sex: Female

DRUGS (7)
  1. SAVELLA [Suspect]
     Indication: FIBROMYALGIA
     Dosage: 12.5 MG (12.5 MG, 1 IN 1 D), ORAL
     Route: 048
     Dates: start: 20090514, end: 20090514
  2. SAVELLA [Suspect]
     Indication: FIBROMYALGIA
     Dosage: 25 MIG (12.5 MG, 2 IN 1 D), ORAL
     Route: 048
     Dates: start: 20090515, end: 20090516
  3. INDERAL [Concomitant]
  4. FEXOFENADINE [Concomitant]
  5. CRESTOR [Concomitant]
  6. PRILOSEC [Concomitant]
  7. INDOCIN [Concomitant]

REACTIONS (1)
  - TREMOR [None]
